FAERS Safety Report 4360770-8 (Version None)
Quarter: 2004Q2

REPORT INFORMATION
  Report Type: 
  Country: None (occurrence: None)
  Receive Date: 20040519
  Receipt Date: 20040512
  Transmission Date: 20050107
  Serious: Yes (Death)
  Sender: FDA-Public Use
  Company Number: 04-05-0676

PATIENT
  Age: 45 Year
  Sex: Male

DRUGS (1)
  1. CLOZAPINE [Suspect]
     Indication: SCHIZOPHRENIA, PARANOID TYPE
     Dosage: 500-1100MG QD ORAL
     Route: 048
     Dates: start: 19980501, end: 20040301

REACTIONS (3)
  - CARDIAC ARREST [None]
  - PNEUMONIA ASPIRATION [None]
  - RESPIRATORY FAILURE [None]
